FAERS Safety Report 7227078-4 (Version None)
Quarter: 2011Q1

REPORT INFORMATION
  Report Type: 
  Country: None (occurrence: None)
  Receive Date: 20110114
  Receipt Date: 20110103
  Transmission Date: 20110831
  Serious: Yes (Other)
  Sender: FDA-Public Use
  Company Number: US-JNJCH-2011000785

PATIENT
  Age: 72 Year
  Sex: Female
  Weight: 53.5 kg

DRUGS (13)
  1. CALTRATE [Concomitant]
     Indication: MINERAL SUPPLEMENTATION
     Dosage: TEXT:600 MG
     Route: 065
  2. PREDNISONE [Suspect]
     Indication: RASH PRURITIC
     Dosage: TEXT:UNKNOWN
     Route: 065
  3. DARIFENACIN [Concomitant]
     Indication: POLLAKIURIA
     Dosage: TEXT:7.5MG ONCE DAILY
     Route: 065
  4. TRAMADOL [Concomitant]
     Indication: PAIN
     Dosage: TEXT:50 MG 3 TIMES DAILY
     Route: 065
  5. RED YEAST RICE [Concomitant]
     Indication: PRODUCT USED FOR UNKNOWN INDICATION
     Dosage: TEXT:600 MG
     Route: 065
  6. BENADRYL [Suspect]
     Indication: HYPERSENSITIVITY
     Dosage: TEXT:UNKNOWN
     Route: 030
     Dates: start: 20110102, end: 20110102
  7. VENLAFAXINE [Concomitant]
     Indication: PRODUCT USED FOR UNKNOWN INDICATION
     Dosage: TEXT:150MG ONCE DAILY
     Route: 065
  8. BUSPAR [Concomitant]
     Indication: ANXIETY
     Dosage: TEXT:15MG ONCE DAILY
     Route: 065
  9. FISH OIL [Concomitant]
     Indication: CARDIAC DISORDER
     Dosage: TEXT:1200MG PER DAY
     Route: 065
  10. BENADRYL [Suspect]
     Indication: RASH PRURITIC
     Dosage: TEXT:TWO
     Route: 048
     Dates: start: 20101230, end: 20110102
  11. XANAX [Concomitant]
     Indication: ANXIETY
     Dosage: TEXT:15 MG 3X A DAY
     Route: 065
  12. METOPROLOL [Concomitant]
     Indication: HYPERTENSION
     Dosage: TEXT:25MG ONCE DAILY
     Route: 065
  13. CENTRUM SILVER [Concomitant]
     Indication: VITAMIN SUPPLEMENTATION
     Dosage: TEXT:ONCE DAILY
     Route: 065

REACTIONS (6)
  - DYSPNOEA [None]
  - HYPERSENSITIVITY [None]
  - BLOOD PRESSURE INCREASED [None]
  - SWOLLEN TONGUE [None]
  - OFF LABEL USE [None]
  - DRUG INEFFECTIVE [None]
